FAERS Safety Report 4917660-9 (Version None)
Quarter: 2006Q1

REPORT INFORMATION
  Report Type: 
  Country: None (occurrence: None)
  Receive Date: 20060215
  Receipt Date: 20060213
  Transmission Date: 20060701
  Serious: Yes (Disabling)
  Sender: FDA-Public Use
  Company Number: 2005_000058

PATIENT
  Age: 58 Year
  Sex: Female
  Weight: 81 kg

DRUGS (10)
  1. DEPOCYT [Suspect]
     Indication: BREAST CANCER
     Dosage: SEE IMAGE
     Dates: start: 20040326, end: 20040528
  2. DEPOCYT [Suspect]
     Indication: MENINGITIS
     Dosage: SEE IMAGE
     Dates: start: 20040326, end: 20040528
  3. DEPOCYT [Suspect]
     Indication: BREAST CANCER
     Dosage: SEE IMAGE
     Dates: start: 20040528, end: 20040826
  4. DEPOCYT [Suspect]
     Indication: MENINGITIS
     Dosage: SEE IMAGE
     Dates: start: 20040528, end: 20040826
  5. SYNTHROID [Concomitant]
  6. FOSAMAX [Concomitant]
  7. MOTRIN [Concomitant]
  8. TYLENOL (CAPLET) [Concomitant]
  9. FLEXERIL [Concomitant]
  10. ARIMIDEX [Concomitant]

REACTIONS (8)
  - ARACHNOIDITIS [None]
  - BONE LESION [None]
  - FAECAL INCONTINENCE [None]
  - GAIT DISTURBANCE [None]
  - HYPOAESTHESIA [None]
  - PAIN [None]
  - PARAPLEGIA [None]
  - PERINEURIAL CYST [None]
